FAERS Safety Report 4367746-5 (Version None)
Quarter: 2004Q2

REPORT INFORMATION
  Report Type: 
  Country: None (occurrence: None)
  Receive Date: 20040527
  Receipt Date: 20030922
  Transmission Date: 20050107
  Serious: Yes (Other)
  Sender: FDA-Public Use
  Company Number: 347625

PATIENT
  Age: 64 Year
  Sex: Female
  Weight: 45.4 kg

DRUGS (5)
  1. LARIAM [Suspect]
     Indication: MALARIA PROPHYLAXIS
     Dosage: ORAL
     Route: 048
     Dates: start: 19980815, end: 19980815
  2. PREMARIN [Concomitant]
  3. FANSIDAR [Concomitant]
  4. NITROGLYCERIN [Concomitant]
  5. CHLOROQUINE (CHLOROQUINE) [Concomitant]

REACTIONS (5)
  - DIZZINESS [None]
  - GRAND MAL CONVULSION [None]
  - HEADACHE [None]
  - NEUROPATHY PERIPHERAL [None]
  - VOMITING [None]
